FAERS Safety Report 22028487 (Version 1)
Quarter: 2023Q1

REPORT INFORMATION
  Report Type: Spontaneous
  Country: US (occurrence: US)
  Receive Date: 20230223
  Receipt Date: 20230223
  Transmission Date: 20230417
  Serious: No
  Sender: FDA-Public Use
  Company Number: US-BRISTOL-MYERS SQUIBB COMPANY-2023-027326

PATIENT

DRUGS (1)
  1. NULOJIX [Suspect]
     Active Substance: BELATACEPT
     Indication: Renal transplant

REACTIONS (4)
  - Pyrexia [Unknown]
  - Chills [Unknown]
  - Epstein-Barr virus antibody positive [Unknown]
  - Feeling abnormal [Unknown]
